FAERS Safety Report 19636296 (Version 4)
Quarter: 2021Q3

REPORT INFORMATION
  Report Type: Spontaneous
  Country: JP (occurrence: JP)
  Receive Date: 20210730
  Receipt Date: 20210818
  Transmission Date: 20211014
  Serious: Yes (Other)
  Sender: FDA-Public Use
  Company Number: JP-GLAXOSMITHKLINE-JP2021159845

PATIENT
  Sex: Female
  Weight: 50 kg

DRUGS (3)
  1. IMIGRAN [Concomitant]
     Active Substance: SUMATRIPTAN SUCCINATE
     Indication: MIGRAINE
     Dosage: UNK
  2. IMIGRAN STATDOSE [Suspect]
     Active Substance: SUMATRIPTAN
  3. IMIGRAN STATDOSE [Suspect]
     Active Substance: SUMATRIPTAN
     Indication: MIGRAINE
     Dosage: UNK

REACTIONS (2)
  - Abnormal sensation in eye [Recovered/Resolved]
  - Depressed level of consciousness [Recovered/Resolved]
